FAERS Safety Report 7270713-5 (Version None)
Quarter: 2011Q1

REPORT INFORMATION
  Report Type: 
  Country: None (occurrence: None)
  Receive Date: 20110202
  Receipt Date: 20110128
  Transmission Date: 20110831
  Serious: Yes (Hospitalization)
  Sender: FDA-Public Use
  Company Number: B0696979A

PATIENT
  Age: 81 Year
  Sex: Male

DRUGS (1)
  1. ROSIGLITAZONE MALEATE [Suspect]
     Route: 048
     Dates: start: 19990101, end: 20020101

REACTIONS (2)
  - DEATH [None]
  - CARDIAC FAILURE CONGESTIVE [None]
